FAERS Safety Report 5793204-7 (Version None)
Quarter: 2008Q2

REPORT INFORMATION
  Report Type: 
  Country: None (occurrence: None)
  Receive Date: 20080626
  Receipt Date: 20080626
  Transmission Date: 20081010
  Serious: Yes (Other)
  Sender: FDA-Public Use
  Company Number: None

PATIENT
  Sex: Male
  Weight: 77.1115 kg

DRUGS (1)
  1. CRESTOR [Suspect]
     Indication: CAROTID ARTERY DISEASE
     Dosage: 10 MG 1 PER DAY PO
     Route: 048
     Dates: start: 20070924, end: 20080224

REACTIONS (6)
  - ACTIVITIES OF DAILY LIVING IMPAIRED [None]
  - MUSCLE INJURY [None]
  - MUSCLE STRAIN [None]
  - MYALGIA [None]
  - NERVE COMPRESSION [None]
  - SLEEP DISORDER [None]
